FAERS Safety Report 7822096-7 (Version None)
Quarter: 2011Q4

REPORT INFORMATION
  Report Type: 
  Country: None (occurrence: None)
  Receive Date: 20111018
  Receipt Date: 20111009
  Transmission Date: 20120403
  Serious: Yes (Other)
  Sender: FDA-Public Use
  Company Number: PHHY2011DE79016

PATIENT
  Sex: Female
  Weight: 60 kg

DRUGS (1)
  1. SANDOSTATIN LAR [Suspect]
     Indication: NEUROENDOCRINE TUMOUR
     Dosage: 30 MG, UNK
     Route: 030
     Dates: start: 20080612

REACTIONS (3)
  - RETINAL VASCULAR THROMBOSIS [None]
  - CARDIOVASCULAR DISORDER [None]
  - HYPOTENSION [None]
